FAERS Safety Report 7409986-4 (Version None)
Quarter: 2011Q2

REPORT INFORMATION
  Report Type: 
  Country: None (occurrence: None)
  Receive Date: 20110412
  Receipt Date: 20110405
  Transmission Date: 20111010
  Serious: Yes (Hospitalization)
  Sender: FDA-Public Use
  Company Number: US-PFIZER INC-2011076107

PATIENT
  Sex: Female

DRUGS (5)
  1. VENLAFAXINE HCL [Suspect]
     Dosage: 25 MG DAILY
     Dates: start: 20110101, end: 20110101
  2. VENLAFAXINE HCL [Suspect]
     Dosage: 100 MG, UNK
  3. VENLAFAXINE HCL [Suspect]
     Dosage: 75 MG DAILY
     Dates: start: 20110101, end: 20110101
  4. VENLAFAXINE HCL [Suspect]
     Dosage: 100 MG DAILY
     Dates: start: 20110321, end: 20110101
  5. VENLAFAXINE HCL [Suspect]
     Dosage: 50 MG DAILY
     Dates: start: 20110101, end: 20110101

REACTIONS (1)
  - GRAND MAL CONVULSION [None]
